FAERS Safety Report 4391607-9 (Version None)
Quarter: 2004Q3

REPORT INFORMATION
  Report Type: 
  Country: None (occurrence: None)
  Receive Date: 20040702
  Receipt Date: 20040427
  Transmission Date: 20050211
  Serious: No
  Sender: FDA-Public Use
  Company Number: 2004UW01781

PATIENT
  Age: 56 Year
  Sex: Male

DRUGS (14)
  1. CRESTOR [Suspect]
     Dosage: 10 MG QD PO
     Route: 048
     Dates: start: 20031117, end: 20040123
  2. LOPID [Concomitant]
  3. ZETIA [Concomitant]
  4. PRINIVIL [Concomitant]
  5. ATROVENT [Concomitant]
  6. ALBUTEROL [Concomitant]
  7. NORVASC [Concomitant]
  8. GLIPIZIDE [Concomitant]
  9. PRILOSEC [Concomitant]
  10. SEREVENT [Concomitant]
  11. ASPIRIN [Concomitant]
  12. ZOLOFT [Concomitant]
  13. TRAZODONE HCL [Concomitant]
  14. FLOVENT [Concomitant]

REACTIONS (2)
  - BLOOD CREATINE PHOSPHOKINASE INCREASED [None]
  - MYOSITIS [None]
